FAERS Safety Report 7203844-6 (Version None)
Quarter: 2010Q4

REPORT INFORMATION
  Report Type: 
  Country: None (occurrence: None)
  Receive Date: 20101230
  Receipt Date: 20101224
  Transmission Date: 20110411
  Serious: Yes (Hospitalization)
  Sender: FDA-Public Use
  Company Number: GR-BAXTER-2010BH030812

PATIENT
  Sex: Male

DRUGS (2)
  1. EXTRANEAL [Suspect]
     Indication: PERITONEAL DIALYSIS
     Route: 033
     Dates: end: 20101201
  2. EXTRANEAL [Suspect]
     Route: 033
     Dates: start: 20101201, end: 20101224

REACTIONS (2)
  - PERITONITIS [None]
  - RESPIRATORY TRACT INFECTION [None]
